FAERS Safety Report 26036873 (Version 1)
Quarter: 2025Q4

REPORT INFORMATION
  Report Type: Spontaneous
  Country: US (occurrence: US)
  Receive Date: 20251112
  Receipt Date: 20251112
  Transmission Date: 20260117
  Serious: Yes (Other)
  Sender: EMD SERONO INC
  Company Number: US-Merck Healthcare KGaA-2025056387

PATIENT
  Age: 51 Year
  Sex: Female

DRUGS (2)
  1. MAVENCLAD [Suspect]
     Active Substance: CLADRIBINE
     Indication: Multiple sclerosis
     Dosage: YEAR ONE MONTH ONE THERAPY
  2. MAVENCLAD [Suspect]
     Active Substance: CLADRIBINE
     Dosage: YEAR ONE MONTH TWO THERAPY: TWO TABLETS ON DAY 1 AND ONE TABLET ON DAYS 2 TO 5
     Dates: start: 20251016, end: 20251020

REACTIONS (18)
  - Neuropathy peripheral [Unknown]
  - Optic neuritis [Unknown]
  - Back pain [Unknown]
  - Fatigue [Unknown]
  - Drug hypersensitivity [Unknown]
  - Bladder disorder [Unknown]
  - Depression [Unknown]
  - Gait disturbance [Unknown]
  - Temperature intolerance [Unknown]
  - Memory impairment [Unknown]
  - Hypoaesthesia [Unknown]
  - Muscle spasticity [Unknown]
  - Dysphagia [Unknown]
  - Speech disorder [Unknown]
  - Facial discomfort [Unknown]
  - Tremor [Unknown]
  - Vertigo [Unknown]
  - Anxiety [Unknown]

NARRATIVE: CASE EVENT DATE: 20251031
